FAERS Safety Report 7690416-2 (Version None)
Quarter: 2011Q3

REPORT INFORMATION
  Report Type: 
  Country: None (occurrence: None)
  Receive Date: 20110812
  Receipt Date: 20110727
  Transmission Date: 20111222
  Serious: Yes (Life-Threatening, Hospitalization)
  Sender: FDA-Public Use
  Company Number: 2011MA010809

PATIENT
  Age: 91 Year
  Sex: Female

DRUGS (5)
  1. CARVEDILOL [Concomitant]
  2. WARFARIN SODIUM [Concomitant]
  3. RAMIPRIL [Suspect]
     Indication: HYPERTENSION
     Dosage: 10 MG; QD; PO
     Route: 048
  4. TRIMETHOPRIM [Suspect]
     Indication: URINARY TRACT INFECTION
     Dosage: 10 MG; QD; PO
     Route: 048
     Dates: start: 20101229, end: 20110101
  5. BENDROFLUMETHIAZIDE (BENDROFLUMETHIAZIDE) [Suspect]
     Indication: CARDIAC FAILURE CONGESTIVE
     Dosage: 2.5 MG; QD; PO
     Route: 048

REACTIONS (2)
  - DRUG INTERACTION [None]
  - HYPONATRAEMIA [None]
